FAERS Safety Report 4592097-3 (Version None)
Quarter: 2005Q1

REPORT INFORMATION
  Report Type: 
  Country: None (occurrence: None)
  Receive Date: 20050125
  Receipt Date: 20040922
  Transmission Date: 20050727
  Serious: No
  Sender: FDA-Public Use
  Company Number: USA040774046

PATIENT
  Age: 65 Year
  Sex: Female
  Weight: 57 kg

DRUGS (4)
  1. FORTEO [Suspect]
     Indication: OSTEOPOROSIS
     Dosage: 20 UG/1 DAY
     Dates: start: 20040722
  2. SINGULAIR (MONTELUKAST) [Concomitant]
  3. PULMICORT [Concomitant]
  4. VITAMIN D [Concomitant]

REACTIONS (3)
  - CONSTIPATION [None]
  - FAECES HARD [None]
  - INJECTION SITE HAEMORRHAGE [None]
